FAERS Safety Report 4705120-X (Version None)
Quarter: 2005Q3

REPORT INFORMATION
  Report Type: 
  Country: None (occurrence: None)
  Receive Date: 20050701
  Receipt Date: 20050621
  Transmission Date: 20060218
  Serious: Yes (Hospitalization)
  Sender: FDA-Public Use
  Company Number: 200511648EU

PATIENT
  Age: 93 Year
  Sex: Female

DRUGS (3)
  1. SEGURIL [Suspect]
     Indication: MYOCARDIAL ISCHAEMIA
     Route: 048
     Dates: start: 20040918, end: 20040921
  2. CAPOTEN [Suspect]
     Indication: ESSENTIAL HYPERTENSION
     Route: 048
     Dates: start: 20040901, end: 20040921
  3. MASDIL [Concomitant]
     Indication: ATRIAL FIBRILLATION
     Route: 047

REACTIONS (1)
  - RENAL FAILURE ACUTE [None]
